FAERS Safety Report 5153673-2 (Version None)
Quarter: 2006Q4

REPORT INFORMATION
  Report Type: 
  Country: None (occurrence: None)
  Receive Date: 20061114
  Receipt Date: 20061030
  Transmission Date: 20070319
  Serious: Yes (Hospitalization)
  Sender: FDA-Public Use
  Company Number: FABR-11706

PATIENT
  Age: 36 Year
  Sex: Male
  Weight: 55 kg

DRUGS (1)
  1. FABRAZYME [Suspect]
     Indication: FABRY'S DISEASE
     Dosage: 55 MG Q2WKS IV
     Route: 042
     Dates: start: 20001117

REACTIONS (5)
  - BK VIRUS INFECTION [None]
  - HAEMODIALYSIS [None]
  - RENAL FAILURE CHRONIC [None]
  - RENAL TRANSPLANT [None]
  - URINE ANALYSIS ABNORMAL [None]
